FAERS Safety Report 8559244-X (Version None)
Quarter: 2012Q3

REPORT INFORMATION
  Report Type: 
  Country: None (occurrence: None)
  Receive Date: 20120720
  Receipt Date: 20120710
  Transmission Date: 20120928
  Serious: Yes (Hospitalization, Other)
  Sender: FDA-Public Use
  Company Number: AUR-APL-2012-02982

PATIENT
  Age: 29 Year
  Sex: Female
  Weight: 66.68 kg

DRUGS (4)
  1. QUETIAPINE FUMARATE [Concomitant]
  2. LAMOTRIGINE [Suspect]
     Indication: BIPOLAR DISORDER
     Dosage: 100 MG (100 MG, 1 IN 1 D), ORAL
     Route: 048
     Dates: start: 20120301, end: 20120621
  3. RIGEVIDON (EUGYNON /00022701/) [Concomitant]
  4. LEVOTHYROXINE SODIUM [Concomitant]

REACTIONS (2)
  - MENINGITIS ASEPTIC [None]
  - MENINGITIS VIRAL [None]
